FAERS Safety Report 10218716 (Version 2)
Quarter: 2014Q4

REPORT INFORMATION
  Report Type: Spontaneous
  Country: CN (occurrence: CN)
  Receive Date: 20140605
  Receipt Date: 20141022
  Transmission Date: 20150528
  Serious: Yes (Other)
  Sender: FDA-Public Use
  Company Number: PHHY2014CN068236

PATIENT

DRUGS (1)
  1. SEBIVO [Suspect]
     Active Substance: TELBIVUDINE
     Indication: CHRONIC HEPATITIS B
     Dosage: UNK (MATERNAL DOSE:1 DF, QD)
     Route: 064
     Dates: start: 20120801, end: 20130228

REACTIONS (3)
  - Foetal exposure during pregnancy [Unknown]
  - Foetal growth restriction [Unknown]
  - Foetal disorder [Unknown]

NARRATIVE: CASE EVENT DATE: 201302
